FAERS Safety Report 16533433 (Version 1)
Quarter: 2019Q3

REPORT INFORMATION
  Report Type: Report from Study
  Country: IT (occurrence: IT)
  Receive Date: 20190704
  Receipt Date: 20190704
  Transmission Date: 20191004
  Serious: Yes (Other)
  Sender: FDA-Public Use
  Company Number: IT-TEVA-2019-IT-1072453

PATIENT
  Age: 16 Year
  Sex: Female

DRUGS (7)
  1. CARBAMAZEPINE. [Suspect]
     Active Substance: CARBAMAZEPINE
     Indication: DRUG ABUSE
     Dosage: 600MG
     Route: 048
     Dates: start: 20190426, end: 20190426
  2. LITHIUM. [Suspect]
     Active Substance: LITHIUM
     Indication: DRUG ABUSE
     Dosage: 750 MG
     Route: 048
     Dates: start: 20190426, end: 20190426
  3. DEPAKIN 1000 MG GRANULATO A RILASCIO MODIFICATO [Suspect]
     Active Substance: VALPROATE SODIUM
     Indication: DRUG ABUSE
     Dosage: 1000 MG
     Route: 048
     Dates: start: 20190426, end: 20190426
  4. PROMAZINE HYDROCHLORIDE [Suspect]
     Active Substance: PROMAZINE HYDROCHLORIDE
     Indication: DRUG ABUSE
     Dosage: 50 GTT
     Route: 048
     Dates: start: 20190426, end: 20190426
  5. RISPERIDONE. [Suspect]
     Active Substance: RISPERIDONE
     Indication: DRUG ABUSE
     Dosage: 8 MG
     Route: 048
     Dates: start: 20190426, end: 20190426
  6. OLANZAPINE. [Suspect]
     Active Substance: OLANZAPINE
     Indication: DRUG ABUSE
     Dosage: 10 MG
     Route: 048
     Dates: start: 20190426, end: 20190426
  7. LORAZEPAM. [Suspect]
     Active Substance: LORAZEPAM
     Indication: DRUG ABUSE
     Dosage: 5 MG
     Route: 048
     Dates: start: 20190426, end: 20190426

REACTIONS (3)
  - Drug abuse [Recovering/Resolving]
  - Aphasia [Recovering/Resolving]
  - Sopor [Recovering/Resolving]

NARRATIVE: CASE EVENT DATE: 20190426
